FAERS Safety Report 5504197-1 (Version None)
Quarter: 2007Q4

REPORT INFORMATION
  Report Type: 
  Country: None (occurrence: None)
  Receive Date: 20071101
  Receipt Date: 20071024
  Transmission Date: 20080405
  Serious: Yes (Hospitalization)
  Sender: FDA-Public Use
  Company Number: B0490825A

PATIENT
  Age: 76 Year
  Sex: Male
  Weight: 76 kg

DRUGS (4)
  1. BECOTIDE 250 MCG [Suspect]
     Indication: CHRONIC OBSTRUCTIVE PULMONARY DISEASE
     Route: 055
     Dates: start: 20070901, end: 20070901
  2. VENTODISK [Suspect]
     Dosage: 4PUFF PER DAY
  3. NEOCODION [Suspect]
     Dosage: 4UNIT PER DAY
  4. VENTOLIN [Concomitant]
     Indication: CHRONIC OBSTRUCTIVE PULMONARY DISEASE
     Route: 055
     Dates: start: 20070901, end: 20070901

REACTIONS (4)
  - HYPERGLYCAEMIA [None]
  - MENIERE'S DISEASE [None]
  - VERTIGO [None]
  - VOMITING [None]
